FAERS Safety Report 6581128-7 (Version None)
Quarter: 2010Q1

REPORT INFORMATION
  Report Type: 
  Country: None (occurrence: None)
  Receive Date: 20100215
  Receipt Date: 20100211
  Transmission Date: 20100710
  Serious: Yes (Death, Hospitalization)
  Sender: FDA-Public Use
  Company Number: PHEH2009US15885

PATIENT
  Sex: Female

DRUGS (6)
  1. EXJADE [Suspect]
     Indication: MYELODYSPLASTIC SYNDROME
     Dosage: 2000 MG, QD
     Dates: start: 20080620
  2. EXJADE [Suspect]
     Indication: LEUKOPENIA
  3. EXJADE [Suspect]
     Indication: THROMBOCYTOPENIA
  4. EXJADE [Suspect]
     Indication: ANAEMIA
  5. EXJADE [Suspect]
     Indication: WHITE BLOOD CELL DISORDER
  6. CHEMOTHERAPEUTICS NOS [Concomitant]

REACTIONS (4)
  - DEATH [None]
  - DECREASED IMMUNE RESPONSIVENESS [None]
  - FATIGUE [None]
  - LEUKAEMIA [None]
